FAERS Safety Report 4492668-9 (Version None)
Quarter: 2004Q4

REPORT INFORMATION
  Report Type: 
  Country: None (occurrence: None)
  Receive Date: 20041028
  Receipt Date: 20041012
  Transmission Date: 20050328
  Serious: Yes (Other)
  Sender: FDA-Public Use
  Company Number: 601585

PATIENT
  Age: 80 Year
  Sex: Female

DRUGS (3)
  1. FEIBA VH IMMUNO [Suspect]
     Indication: ACQUIRED HAEMOPHILIA
     Dosage: 50 IU/KG;
  2. PREDNISOLONE [Concomitant]
  3. CYCLOPHOSPHAMIDE [Concomitant]

REACTIONS (2)
  - HEMIPARESIS [None]
  - SPINAL HAEMATOMA [None]
